FAERS Safety Report 9655645 (Version 3)
Quarter: 2013Q4

REPORT INFORMATION
  Report Type: Spontaneous
  Country: CH (occurrence: CH)
  Receive Date: 20131030
  Receipt Date: 20131211
  Transmission Date: 20140711
  Serious: Yes (Death, Other)
  Sender: FDA-Public Use
  Company Number: CH-AMGEN-CHESP2013075352

PATIENT
  Sex: Male
  Weight: .23 kg

DRUGS (7)
  1. ARANESP [Suspect]
     Indication: PRODUCT USED FOR UNKNOWN INDICATION
     Dosage: 100-150 MCG, QWK
     Route: 064
     Dates: start: 20121018
  2. RITUXIMAB [Suspect]
     Indication: GRANULOMATOSIS WITH POLYANGIITIS
     Dosage: 700 MG, 4 TOTAL DOSE
     Route: 064
     Dates: start: 20121019, end: 20121109
  3. PREDNISONE [Suspect]
     Indication: GRANULOMATOSIS WITH POLYANGIITIS
     Dosage: 75 MG, ONE QD
     Route: 064
     Dates: start: 20121018
  4. IMUREK /00001501/ [Suspect]
     Indication: GRANULOMATOSIS WITH POLYANGIITIS
     Dosage: 50-100 MG UNK, QD
     Route: 064
     Dates: start: 20121118
  5. CO-TRIMOXAZOL [Suspect]
     Indication: PRODUCT USED FOR UNKNOWN INDICATION
     Dosage: 800/160 MG, Q3WK
     Route: 064
     Dates: start: 20121018, end: 201212
  6. TRANDATE [Suspect]
     Indication: RENAL HYPERTENSION
     Dosage: 600-2400 MG
     Route: 064
     Dates: start: 20121018
  7. ALDOMET [Suspect]
     Indication: RENAL HYPERTENSION
     Dosage: 600 MG, QD
     Route: 064
     Dates: start: 201212

REACTIONS (7)
  - Foetal death [Fatal]
  - Exomphalos [Unknown]
  - Foetal growth restriction [Unknown]
  - Finger deformity [Unknown]
  - Congenital nose malformation [Unknown]
  - Hypertelorism of orbit [Unknown]
  - Ear malformation [Unknown]
